FAERS Safety Report 8473599-6 (Version None)
Quarter: 2012Q2

REPORT INFORMATION
  Report Type: 
  Country: None (occurrence: None)
  Receive Date: 20120628
  Receipt Date: 20110630
  Transmission Date: 20120825
  Serious: Yes (Other)
  Sender: FDA-Public Use
  Company Number: US-MYLANLABS-2011S1013704

PATIENT
  Age: 60 Year
  Sex: Male

DRUGS (13)
  1. SENOKOT [Concomitant]
  2. ASPIRIN [Concomitant]
  3. MIDODRINE HYDROCHLORIDE [Concomitant]
  4. HEPARIN [Concomitant]
     Route: 058
  5. ZOCOR [Concomitant]
  6. CLOZAPINE [Suspect]
     Route: 048
     Dates: end: 20110624
  7. PLAVIX [Concomitant]
  8. PROTONIX [Concomitant]
  9. PHENYTOIN [Concomitant]
  10. CLOZAPINE [Suspect]
     Indication: SCHIZOPHRENIA
     Route: 048
     Dates: end: 20110624
  11. VITAMIN [Concomitant]
  12. LEVOTHYROXINE [Concomitant]
     Indication: HYPOTHYROIDISM
  13. COGENTIN [Concomitant]

REACTIONS (1)
  - LEUKOPENIA [None]
